FAERS Safety Report 5119097-9 (Version None)
Quarter: 2006Q3

REPORT INFORMATION
  Report Type: 
  Country: None (occurrence: None)
  Receive Date: 20060926
  Receipt Date: 20060912
  Transmission Date: 20061208
  Serious: Yes (Life-Threatening, Hospitalization)
  Sender: FDA-Public Use
  Company Number: 147496ISR

PATIENT
  Age: 28 Year
  Sex: Male

DRUGS (1)
  1. FLUOXETINE HCL [Suspect]
     Indication: DEPRESSION
     Dosage: 20 MG ORAL
     Route: 048
     Dates: start: 20060620, end: 20060711

REACTIONS (1)
  - RHABDOMYOLYSIS [None]
